FAERS Safety Report 7878772-3 (Version None)
Quarter: 2011Q4

REPORT INFORMATION
  Report Type: 
  Country: None (occurrence: None)
  Receive Date: 20111028
  Receipt Date: 20111013
  Transmission Date: 20120403
  Serious: Yes (Life-Threatening, Hospitalization)
  Sender: FDA-Public Use
  Company Number: JPI-P-013325

PATIENT
  Age: 72 Year
  Sex: Male

DRUGS (5)
  1. NITROGLYCERIN [Concomitant]
  2. MULTIPLE UNSPECIFIED MEDICATIONS [Concomitant]
  3. XYREM [Suspect]
     Indication: SLEEP DISORDER
     Dosage: 6 GM (3 GM, 2 IN 1 D), ORAL; 6 GM (3 GM, 2 IN 1 D), ORAL
     Dates: start: 20080303, end: 20101118
  4. ASPIRIN [Concomitant]
  5. METHYLPHENIDATE HCL [Concomitant]

REACTIONS (13)
  - CARDIAC ARREST [None]
  - CATHETER SITE PAIN [None]
  - CONVULSION [None]
  - BLOOD CHOLESTEROL INCREASED [None]
  - GASTROINTESTINAL DISORDER [None]
  - ARTERIAL OCCLUSIVE DISEASE [None]
  - HEART RATE IRREGULAR [None]
  - CHEST DISCOMFORT [None]
  - CORONARY ARTERY BYPASS [None]
  - BLOOD PRESSURE INCREASED [None]
  - BLOOD POTASSIUM DECREASED [None]
  - CELLULITIS [None]
  - CATHETER SITE SWELLING [None]
